FAERS Safety Report 5014396-3 (Version None)
Quarter: 2006Q2

REPORT INFORMATION
  Report Type: 
  Country: None (occurrence: None)
  Receive Date: 20060531
  Receipt Date: 20060519
  Transmission Date: 20061013
  Serious: Yes (Other)
  Sender: FDA-Public Use
  Company Number: US-JNJFOC-20060400948

PATIENT
  Sex: Male
  Weight: 121.56 kg

DRUGS (2)
  1. REMICADE [Suspect]
     Indication: CROHN'S DISEASE
     Dosage: PATIENT RECEIVED A TOTAL OF 27 INFLIXIMAB INFUSIONS
     Route: 042
  2. MERCAPTOPURINE [Concomitant]

REACTIONS (2)
  - HODGKIN'S DISEASE MIXED CELLULARITY STAGE UNSPECIFIED [None]
  - SALIVARY GLAND ENLARGEMENT [None]
